FAERS Safety Report 17358751 (Version 1)
Quarter: 2020Q1

REPORT INFORMATION
  Report Type: Spontaneous
  Country: US (occurrence: US)
  Receive Date: 20200201
  Receipt Date: 20200201
  Transmission Date: 20200409
  Serious: No
  Sender: FDA-Public Use
  Company Number: US-LANNETT COMPANY, INC.-US-2019LAN000230

PATIENT

DRUGS (4)
  1. LEVETIRACETAM. [Concomitant]
     Active Substance: LEVETIRACETAM
     Indication: SEIZURE
     Dosage: UNK
     Route: 065
  2. BACLOFEN (10MG) [Suspect]
     Active Substance: BACLOFEN
     Dosage: UNK, TID
  3. BACLOFEN (10MG) [Suspect]
     Active Substance: BACLOFEN
     Dosage: 1 DF, BID
  4. BACLOFEN (10MG) [Suspect]
     Active Substance: BACLOFEN
     Indication: TRIGEMINAL NEURALGIA
     Dosage: 1 DF, QD (IN THE EVENING)

REACTIONS (3)
  - Blood pressure increased [Recovered/Resolved]
  - Chest discomfort [Recovered/Resolved]
  - Paraesthesia [Not Recovered/Not Resolved]
